FAERS Safety Report 25552557 (Version 1)
Quarter: 2025Q3

REPORT INFORMATION
  Report Type: Report from Study
  Country: IN (occurrence: IN)
  Receive Date: 20250715
  Receipt Date: 20250715
  Transmission Date: 20251020
  Serious: Yes (Other)
  Sender: ALEXION PHARMACEUTICALS
  Company Number: IN-AstraZeneca-CH-00909529A

PATIENT
  Sex: Male
  Weight: 77 kg

DRUGS (1)
  1. OLAPARIB [Suspect]
     Active Substance: OLAPARIB
     Dates: start: 20250613, end: 20250621

REACTIONS (2)
  - Ageusia [Unknown]
  - Neuropathy peripheral [Unknown]
